FAERS Safety Report 9777717 (Version 1)
Quarter: 2013Q4

REPORT INFORMATION
  Report Type: Spontaneous
  Country: ES (occurrence: ES)
  Receive Date: 20131223
  Receipt Date: 20131223
  Transmission Date: 20140711
  Serious: Yes (Other)
  Sender: FDA-Public Use
  Company Number: ES-AMGEN-ESPSP2013088356

PATIENT
  Sex: 0

DRUGS (2)
  1. NPLATE [Suspect]
     Indication: PRODUCT USED FOR UNKNOWN INDICATION
     Dosage: 250 MUG, UNK
     Route: 058
     Dates: start: 20100812
  2. VIDAZA [Concomitant]
     Dosage: 25 MG/ML, UNK
     Route: 058

REACTIONS (1)
  - Myelofibrosis [Recovered/Resolved]
